FAERS Safety Report 9522454 (Version 1)
Quarter: 2013Q3

REPORT INFORMATION
  Report Type: Spontaneous
  Country: US (occurrence: US)
  Receive Date: 20130913
  Receipt Date: 20130913
  Transmission Date: 20140515
  Serious: Yes (Hospitalization, Other)
  Sender: FDA-Public Use
  Company Number: US-NOVOPROD-386936

PATIENT
  Age: 50 Year
  Sex: Male
  Weight: 86.17 kg

DRUGS (1)
  1. NOVOLOG [Suspect]
     Indication: TYPE 2 DIABETES MELLITUS
     Dosage: UNK
     Route: 058

REACTIONS (2)
  - Cerebrovascular accident [Recovered/Resolved]
  - Hypoglycaemic coma [Recovered/Resolved]
